FAERS Safety Report 7918359-7 (Version None)
Quarter: 2011Q4

REPORT INFORMATION
  Report Type: 
  Country: None (occurrence: None)
  Receive Date: 20111116
  Receipt Date: 20111111
  Transmission Date: 20120403
  Serious: Yes (Death)
  Sender: FDA-Public Use
  Company Number: IT-ELI_LILLY_AND_COMPANY-IT201111001036

PATIENT

DRUGS (4)
  1. ETOPOSIDE [Concomitant]
     Dosage: 70 MG/M2, ON DAYS 1 TO 3
     Route: 042
  2. GEMCITABINE HYDROCHLORIDE [Suspect]
     Indication: SMALL CELL LUNG CANCER STAGE UNSPECIFIED
     Dosage: 1000 MG/M2, ON DAYS 1 AND 8 EVERY 3 WEEKS
     Route: 042
  3. ETOPOSIDE [Concomitant]
     Dosage: 80 MG/M2, ON DAYS 1 TO 3
     Route: 042
  4. ETOPOSIDE [Concomitant]
     Indication: SMALL CELL LUNG CANCER STAGE UNSPECIFIED
     Dosage: 60 MG/M2, ON DAYS 1 TO 3
     Route: 042

REACTIONS (1)
  - CARDIAC FAILURE [None]
